FAERS Safety Report 17243859 (Version 2)
Quarter: 2020Q2

REPORT INFORMATION
  Report Type: Spontaneous
  Country: US (occurrence: US)
  Receive Date: 20200107
  Receipt Date: 20200610
  Transmission Date: 20200713
  Serious: Yes (Other)
  Sender: FDA-Public Use
  Company Number: US-ROCHE-2264066

PATIENT
  Age: 38 Year
  Sex: Female
  Weight: 110 kg

DRUGS (3)
  1. ALTEPLASE. [Suspect]
     Active Substance: ALTEPLASE
     Indication: ISCHAEMIC STROKE
     Dosage: 0.9 MG/KG TO A MAXIMUM OF 90 MG; THE PATIENT^S WEIGHT WAS 110 KG.
     Route: 042
  2. ALTEPLASE. [Suspect]
     Active Substance: ALTEPLASE
     Indication: VASCULITIS
  3. PREDNISONE. [Concomitant]
     Active Substance: PREDNISONE
     Route: 048

REACTIONS (5)
  - Haemorrhagic transformation stroke [Unknown]
  - Neurological decompensation [Unknown]
  - Mental status changes [Unknown]
  - Dysarthria [Unknown]
  - Ischaemic stroke [Unknown]
